FAERS Safety Report 5379706-6 (Version None)
Quarter: 2007Q3

REPORT INFORMATION
  Report Type: 
  Country: None (occurrence: None)
  Receive Date: 20070706
  Receipt Date: 20070627
  Transmission Date: 20080115
  Serious: Yes (Other)
  Sender: FDA-Public Use
  Company Number: PHMT2007CA01478

PATIENT
  Age: 59 Year
  Sex: Female

DRUGS (1)
  1. FEMARA [Suspect]
     Indication: BREAST CANCER
     Dates: start: 20050601

REACTIONS (3)
  - GLOMERULONEPHRITIS RAPIDLY PROGRESSIVE [None]
  - MALAISE [None]
  - RENAL FAILURE [None]
